FAERS Safety Report 6565066-1 (Version None)
Quarter: 2010Q1

REPORT INFORMATION
  Report Type: 
  Country: None (occurrence: None)
  Receive Date: 20100201
  Receipt Date: 20100119
  Transmission Date: 20100710
  Serious: Yes (Other)
  Sender: FDA-Public Use
  Company Number: US-SANOFI-AVENTIS-2010SA003781

PATIENT
  Age: 70 Year
  Sex: Female

DRUGS (6)
  1. APIDRA [Suspect]
     Dosage: DOSE:10 UNIT(S)
     Route: 065
     Dates: start: 20090101
  2. APIDRA [Suspect]
     Dosage: SLIDING SCALE WHEN BLOOD SUGAR IS OVER 200
     Route: 065
     Dates: start: 20100101
  3. INSULIN DETEMIR [Suspect]
     Dosage: DOSE AS USED: 35 UNITS IN A.M. AND 78 UNITS IN P.M.
     Route: 065
     Dates: start: 20090101
  4. LANTUS [Concomitant]
     Dosage: DOSE:60 UNIT(S)
     Route: 058
     Dates: end: 20090101
  5. LANTUS [Concomitant]
     Dosage: DOSE:75 UNIT(S)
     Route: 058
     Dates: start: 20100119
  6. HUMALOG [Concomitant]
     Route: 065

REACTIONS (7)
  - ERYTHEMA [None]
  - FALL [None]
  - INJECTION SITE NODULE [None]
  - INJECTION SITE PAIN [None]
  - PRURITUS [None]
  - TRIGGER FINGER [None]
  - WRIST FRACTURE [None]
